FAERS Safety Report 7513983-8 (Version None)
Quarter: 2011Q2

REPORT INFORMATION
  Report Type: 
  Country: None (occurrence: None)
  Receive Date: 20110531
  Receipt Date: 20110516
  Transmission Date: 20111010
  Serious: Yes (Hospitalization, Other)
  Sender: FDA-Public Use
  Company Number: PHHY2011US26756

PATIENT
  Sex: Female

DRUGS (23)
  1. METAMUCIL-2 [Concomitant]
     Dosage: UNK, EVERY DAY
  2. SENNA-MINT WAF [Concomitant]
     Dosage: UNK, AS NEEDED
  3. EXELON [Suspect]
     Dosage: 4.6 MG DAILY
     Route: 062
  4. SIMVASTATIN [Concomitant]
     Dosage: 20 MG, UNK
     Route: 048
  5. SODIUM CHLORIDE [Concomitant]
     Dosage: UNK
  6. ENSURE PLUS [Concomitant]
     Dosage: UNK, BID
  7. FAMOTIDINE [Concomitant]
     Dosage: UNK
  8. TAB-A-VITE [Concomitant]
     Dosage: UNK
  9. MIRALAX [Concomitant]
     Dosage: 17 G, UNK
  10. MACRODANTIN [Concomitant]
     Dosage: 50 MG, QD
  11. METOPROLOL TARTRATE [Concomitant]
     Dosage: 28 MG, BID
  12. CALCIUM WITH VITAMIN D [Concomitant]
     Dosage: UNK, BID
  13. PEPCID [Concomitant]
     Dosage: UNK, 1X DAILY
  14. BACID [Concomitant]
     Dosage: 18 -250 MG, BID
  15. CRANBERRY JUICE POWDER [Concomitant]
     Dosage: 425 MG, BID
  16. ACETAMINOPHEN [Concomitant]
     Dosage: 325 MG, PRN
  17. DOCUSATE [Concomitant]
     Dosage: 2 PER DAY AS NEEDED
  18. BONIVA [Concomitant]
     Dosage: 150 MG, 1 X MONTH
  19. SERTRALINE HYDROCHLORIDE [Concomitant]
     Dosage: UNK
  20. NITROFURANTOIN [Concomitant]
     Dosage: 50 MG, PER DAY
  21. FLOMAX [Concomitant]
     Dosage: 4 MG, QD
  22. ZOCOR [Concomitant]
     Dosage: 20 MG, QD
  23. TAMSULOSIN HCL [Concomitant]
     Dosage: 0.4 MG, UNK

REACTIONS (21)
  - URINARY TRACT INFECTION [None]
  - FAECAL INCONTINENCE [None]
  - UPPER RESPIRATORY TRACT INFECTION [None]
  - VOMITING [None]
  - APHAGIA [None]
  - DEHYDRATION [None]
  - HYPOTENSION [None]
  - LIMB INJURY [None]
  - CONTUSION [None]
  - MUSCULAR WEAKNESS [None]
  - FLATULENCE [None]
  - WRONG TECHNIQUE IN DRUG USAGE PROCESS [None]
  - DIVERTICULUM [None]
  - TREMOR [None]
  - CEREBRAL HAEMORRHAGE [None]
  - TOXICITY TO VARIOUS AGENTS [None]
  - HAEMORRHOIDS [None]
  - SKIN EXFOLIATION [None]
  - FATIGUE [None]
  - CONFUSIONAL STATE [None]
  - ABDOMINAL DISCOMFORT [None]
